FAERS Safety Report 11880241 (Version 2)
Quarter: 2016Q1

REPORT INFORMATION
  Report Type: Spontaneous
  Country: US (occurrence: US)
  Receive Date: 20151230
  Receipt Date: 20160209
  Transmission Date: 20160526
  Serious: Yes (Other)
  Sender: FDA-Public Use
  Company Number: US-ASTRAZENECA-2015SF26829

PATIENT
  Age: 27514 Day
  Sex: Female
  Weight: 77.1 kg

DRUGS (18)
  1. LUTEIN [Concomitant]
     Active Substance: LUTEIN
     Route: 048
  2. TOLTERODINE L-TARTRATE [Concomitant]
     Active Substance: TOLTERODINE TARTRATE
     Route: 048
  3. JANUVIA [Concomitant]
     Active Substance: SITAGLIPTIN PHOSPHATE
     Indication: TYPE 2 DIABETES MELLITUS
     Route: 048
     Dates: start: 20140324
  4. LORATADINE. [Concomitant]
     Active Substance: LORATADINE
     Route: 048
  5. OMEPRAZOLE. [Concomitant]
     Active Substance: OMEPRAZOLE
     Route: 048
  6. SYNTHROID [Concomitant]
     Active Substance: LEVOTHYROXINE SODIUM
     Route: 048
  7. INVOKANA [Concomitant]
     Active Substance: CANAGLIFLOZIN
     Dosage: ONCE DAILY
     Route: 048
     Dates: start: 20151219
  8. MELOXICAM. [Concomitant]
     Active Substance: MELOXICAM
     Route: 048
     Dates: start: 20151113
  9. ATORVASTATIN CALCIUM. [Concomitant]
     Active Substance: ATORVASTATIN CALCIUM
     Route: 048
     Dates: start: 20140607
  10. ALPHA LIPOIC ACID [Concomitant]
     Active Substance: .ALPHA.-LIPOIC ACID
     Dosage: 150-0.1-500
     Route: 048
  11. MULTI VITAMIN [Concomitant]
     Active Substance: VITAMINS
     Route: 048
  12. BYDUREON [Suspect]
     Active Substance: EXENATIDE
     Indication: TYPE 2 DIABETES MELLITUS
     Route: 058
     Dates: start: 20151113, end: 20151214
  13. ASPIRIN. [Concomitant]
     Active Substance: ASPIRIN
     Route: 048
     Dates: start: 20140607
  14. MAGNESIUM [Concomitant]
     Active Substance: MAGNESIUM
     Route: 048
  15. LOSARTAN POTASSIUM. [Concomitant]
     Active Substance: LOSARTAN POTASSIUM
     Route: 048
  16. SAM [Concomitant]
     Dosage: AS DIRECTED
     Route: 048
  17. METFORMIN HYDROCHLORIDE. [Concomitant]
     Active Substance: METFORMIN HYDROCHLORIDE
     Indication: TYPE 2 DIABETES MELLITUS
     Route: 048
     Dates: start: 20140324
  18. FARXIGA [Concomitant]
     Active Substance: DAPAGLIFLOZIN PROPANEDIOL
     Route: 048
     Dates: start: 20151228

REACTIONS (8)
  - Injection site urticaria [Recovered/Resolved]
  - Injection site pruritus [Recovered/Resolved]
  - Injection site erythema [Unknown]
  - Intentional product misuse [Unknown]
  - Drug dose omission [Unknown]
  - Injection site pain [Not Recovered/Not Resolved]
  - Injection site rash [Recovered/Resolved]
  - Injection site nodule [Unknown]

NARRATIVE: CASE EVENT DATE: 20151214
